FAERS Safety Report 10192305 (Version 1)
Quarter: 2014Q2

REPORT INFORMATION
  Report Type: Report from Study
  Country: CA (occurrence: CA)
  Receive Date: 20140523
  Receipt Date: 20140523
  Transmission Date: 20141212
  Serious: Yes (Hospitalization)
  Sender: FDA-Public Use
  Company Number: CA-JNJFOC-20140509839

PATIENT
  Age: 53 Year
  Sex: Male
  Weight: 95 kg

DRUGS (8)
  1. REMICADE [Suspect]
     Indication: CROHN^S DISEASE
     Route: 042
  2. REMICADE [Suspect]
     Indication: CROHN^S DISEASE
     Dosage: 2 ND LOADING DOSE
     Route: 042
     Dates: start: 201405
  3. DIAZEPAM [Concomitant]
     Route: 065
  4. CIPRALEX [Concomitant]
     Route: 065
  5. OLANZAPINE [Concomitant]
     Route: 065
  6. RESTORIL [Concomitant]
     Route: 065
  7. FLAGYL [Concomitant]
     Route: 065
  8. IMURAN [Concomitant]
     Route: 065

REACTIONS (10)
  - Hyperhidrosis [Unknown]
  - Swelling [Unknown]
  - Swelling face [Recovering/Resolving]
  - Hypoaesthesia [Unknown]
  - Pain [Unknown]
  - Flushing [Recovering/Resolving]
  - Infusion related reaction [Recovering/Resolving]
  - Paraesthesia [Recovering/Resolving]
  - Feeling hot [Recovering/Resolving]
  - Local swelling [Recovering/Resolving]
